FAERS Safety Report 8338287-5 (Version None)
Quarter: 2012Q2

REPORT INFORMATION
  Report Type: 
  Country: None (occurrence: None)
  Receive Date: 20120504
  Receipt Date: 20120430
  Transmission Date: 20120825
  Serious: Yes (Other)
  Sender: FDA-Public Use
  Company Number: US-TEVA-335836USA

PATIENT
  Age: 82 Year
  Sex: Male

DRUGS (13)
  1. LEVOFLOXACIN [Suspect]
     Indication: BRONCHITIS
     Dates: start: 20120301, end: 20120301
  2. FORMOTEROL FUMARATE [Concomitant]
  3. ASPIRIN [Concomitant]
  4. TOCOPHEROL CONCENTRATE CAP [Concomitant]
  5. ALBUTEROL [Concomitant]
  6. ALLOPURINOL [Concomitant]
     Indication: NEPHROLITHIASIS
     Dosage: 300 MILLIGRAM;
  7. SIMVASTATIN [Suspect]
     Indication: BLOOD CHOLESTEROL INCREASED
     Dosage: 10 MILLIGRAM;
  8. MOMETASONE FUROATE [Concomitant]
     Dosage: 220 MICROGRAM;
  9. TIOTROPIUM BROMIDE [Concomitant]
  10. MULTI-VITAMINS [Concomitant]
  11. DALIRESP [Suspect]
     Indication: CHRONIC OBSTRUCTIVE PULMONARY DISEASE
     Dosage: 500 MICROGRAM;
     Dates: start: 20111001
  12. ASCORBIC ACID [Concomitant]
  13. ERGOCALCIFEROL [Concomitant]

REACTIONS (14)
  - BRONCHITIS [None]
  - FREQUENT BOWEL MOVEMENTS [None]
  - WEIGHT DECREASED [None]
  - GASTROOESOPHAGEAL REFLUX DISEASE [None]
  - ERUCTATION [None]
  - DYSGEUSIA [None]
  - NAUSEA [None]
  - MUSCULAR WEAKNESS [None]
  - TREMOR [None]
  - DRY MOUTH [None]
  - DECREASED APPETITE [None]
  - AGEUSIA [None]
  - OEDEMA PERIPHERAL [None]
  - SWELLING FACE [None]
